FAERS Safety Report 12319254 (Version 1)
Quarter: 2016Q2

REPORT INFORMATION
  Report Type: Spontaneous
  Country: US (occurrence: US)
  Receive Date: 20160429
  Receipt Date: 20160429
  Transmission Date: 20160815
  Serious: No
  Sender: FDA-Public Use
  Company Number: US-ROCHE-1634133

PATIENT
  Sex: Male

DRUGS (2)
  1. ESBRIET [Suspect]
     Active Substance: PIRFENIDONE
     Indication: IDIOPATHIC PULMONARY FIBROSIS
     Route: 048
     Dates: start: 20150919
  2. FINASTERIDE. [Concomitant]
     Active Substance: FINASTERIDE

REACTIONS (4)
  - Dyspnoea [Unknown]
  - Decreased appetite [Unknown]
  - Weight decreased [Unknown]
  - Drug ineffective [Unknown]
